FAERS Safety Report 5699805-9 (Version None)
Quarter: 2008Q1

REPORT INFORMATION
  Report Type: 
  Country: None (occurrence: None)
  Receive Date: 20080303
  Receipt Date: 20080402
  Transmission Date: 20080703
  Serious: Yes (Hospitalization)
  Sender: FDA-Public Use
  Company Number: US-BRACCO-000498

PATIENT
  Sex: Female

DRUGS (4)
  1. MULTIHANCE [Suspect]
     Indication: ANOSMIA
     Route: 042
     Dates: start: 20080324, end: 20080324
  2. MULTIHANCE [Suspect]
     Indication: NUCLEAR MAGNETIC RESONANCE IMAGING BRAIN
     Route: 042
     Dates: start: 20080324, end: 20080324
  3. MULTIHANCE [Suspect]
     Indication: AGEUSIA
     Route: 042
     Dates: start: 20080324, end: 20080324
  4. HORMONES AND RELATED AGENTS [Concomitant]

REACTIONS (4)
  - CONFUSIONAL STATE [None]
  - DIZZINESS [None]
  - HEADACHE [None]
  - HYPERTENSIVE CRISIS [None]
